FAERS Safety Report 9309972 (Version 3)
Quarter: 2013Q3

REPORT INFORMATION
  Report Type: Spontaneous
  Country: US (occurrence: US)
  Receive Date: 20130527
  Receipt Date: 20130726
  Transmission Date: 20140515
  Serious: Yes (Hospitalization, Other)
  Sender: FDA-Public Use
  Company Number: US-009507513-1305USA013426

PATIENT
  Age: 87 Year
  Sex: Female

DRUGS (1)
  1. SAPHRIS [Suspect]
     Dosage: 5 MG, BID
     Route: 060
     Dates: start: 20130504

REACTIONS (4)
  - Fall [Unknown]
  - Hip fracture [Unknown]
  - Hip surgery [Unknown]
  - Postoperative wound infection [Unknown]
